FAERS Safety Report 16549589 (Version 3)
Quarter: 2019Q3

REPORT INFORMATION
  Report Type: Report from Study
  Country: US (occurrence: US)
  Receive Date: 20190710
  Receipt Date: 20190830
  Transmission Date: 20191004
  Serious: Yes (Hospitalization, Other)
  Sender: FDA-Public Use
  Company Number: US-JNJFOC-20190406982

PATIENT
  Age: 78 Year
  Sex: Male

DRUGS (8)
  1. IMBRUVICA [Suspect]
     Active Substance: IBRUTINIB
     Route: 065
     Dates: start: 20190329
  2. IMBRUVICA [Suspect]
     Active Substance: IBRUTINIB
     Route: 048
     Dates: start: 20190717
  3. TYLENOL PM EXTRA STRENGTH [Concomitant]
     Active Substance: ACETAMINOPHEN\DIPHENHYDRAMINE HYDROCHLORIDE
  4. IMBRUVICA [Suspect]
     Active Substance: IBRUTINIB
     Route: 065
     Dates: start: 2019
  5. IMBRUVICA [Suspect]
     Active Substance: IBRUTINIB
     Route: 065
  6. IMBRUVICA [Suspect]
     Active Substance: IBRUTINIB
     Route: 048
     Dates: start: 20190327, end: 20190716
  7. IMBRUVICA [Suspect]
     Active Substance: IBRUTINIB
     Indication: CHRONIC LYMPHOCYTIC LEUKAEMIA
     Dosage: 420 MG, QD
     Route: 048
     Dates: start: 20190327, end: 20190716
  8. IMBRUVICA [Suspect]
     Active Substance: IBRUTINIB
     Route: 048
     Dates: start: 20190329

REACTIONS (22)
  - Nephrolithiasis [Recovering/Resolving]
  - Blood pressure increased [Recovered/Resolved]
  - Therapeutic response decreased [Unknown]
  - Pneumonia [Recovering/Resolving]
  - Incorrect route of product administration [Recovering/Resolving]
  - Mental disorder [Recovering/Resolving]
  - Laboratory test abnormal [Recovering/Resolving]
  - Product use issue [Unknown]
  - Ecchymosis [Not Recovered/Not Resolved]
  - Fungal infection [Recovering/Resolving]
  - Off label use [Unknown]
  - Muscle spasms [Recovered/Resolved]
  - Disease progression [Unknown]
  - Asthenia [Unknown]
  - Urosepsis [Recovering/Resolving]
  - Neutropenia [Not Recovered/Not Resolved]
  - Infection [Recovered/Resolved]
  - Haemorrhagic diathesis [Not Recovered/Not Resolved]
  - Cholelithiasis [Not Recovered/Not Resolved]
  - Wrong technique in product usage process [Unknown]
  - Product preparation issue [Unknown]
  - Diarrhoea [Recovering/Resolving]

NARRATIVE: CASE EVENT DATE: 2019
